FAERS Safety Report 6155548-9 (Version None)
Quarter: 2009Q2

REPORT INFORMATION
  Report Type: 
  Country: None (occurrence: None)
  Receive Date: 20090413
  Receipt Date: 20090326
  Transmission Date: 20091009
  Serious: Yes (Hospitalization)
  Sender: FDA-Public Use
  Company Number: 1000005494

PATIENT
  Age: 80 Year
  Sex: Female

DRUGS (8)
  1. LEXAPRO [Suspect]
     Indication: DEPRESSION
     Dosage: 5 MG (5 MG, 1 IN 1 D), ORAL
     Route: 048
     Dates: start: 20090301, end: 20090325
  2. LEXAPRO [Suspect]
     Indication: DEPRESSION
     Dosage: 5 MG (5 MG, 1 IN 1 D), ORAL
     Route: 048
     Dates: start: 20090328
  3. ASPIRIN [Suspect]
  4. NEXIUM [Concomitant]
  5. BENICAR [Concomitant]
  6. LABETALOL HCL [Concomitant]
  7. GLYBURIDE [Concomitant]
  8. NORVASC [Concomitant]

REACTIONS (6)
  - CONDITION AGGRAVATED [None]
  - DECREASED APPETITE [None]
  - DEPRESSION [None]
  - GASTRITIS HAEMORRHAGIC [None]
  - HAEMATEMESIS [None]
  - THROAT IRRITATION [None]
